FAERS Safety Report 13957857 (Version 1)
Quarter: 2017Q3

REPORT INFORMATION
  Report Type: Report from Study
  Country: US (occurrence: US)
  Receive Date: 20170912
  Receipt Date: 20170912
  Transmission Date: 20171128
  Serious: Yes (Hospitalization)
  Sender: FDA-Public Use
  Company Number: US-GILEAD-2017-0292640

PATIENT
  Age: 48 Year
  Sex: Female

DRUGS (13)
  1. LEVOTHYROXIN [Concomitant]
     Active Substance: LEVOTHYROXINE
  2. REGLAN [Concomitant]
     Active Substance: METOCLOPRAMIDE HYDROCHLORIDE
  3. AMBRISENTAN [Suspect]
     Active Substance: AMBRISENTAN
     Indication: PULMONARY HYPERTENSION
     Dosage: 10 MG, QD
     Route: 065
     Dates: start: 20150710
  4. KEPPRA [Concomitant]
     Active Substance: LEVETIRACETAM
  5. SPIRONOLACTON [Concomitant]
     Active Substance: SPIRONOLACTONE
  6. PROTONIX                           /00661201/ [Concomitant]
     Active Substance: OMEPRAZOLE
  7. FLUOXETINE [Concomitant]
     Active Substance: FLUOXETINE HYDROCHLORIDE
  8. NADOLOL. [Concomitant]
     Active Substance: NADOLOL
  9. TRAZODONE [Concomitant]
     Active Substance: TRAZODONE HYDROCHLORIDE
  10. POTASSIUM [Concomitant]
     Active Substance: POTASSIUM
  11. FUROSEMIDE. [Concomitant]
     Active Substance: FUROSEMIDE
  12. IRON [Concomitant]
     Active Substance: IRON
  13. MAGNESIUM [Concomitant]
     Active Substance: MAGNESIUM

REACTIONS (1)
  - Hysterectomy [Not Recovered/Not Resolved]

NARRATIVE: CASE EVENT DATE: 20170904
